FAERS Safety Report 7138505-5 (Version None)
Quarter: 2010Q4

REPORT INFORMATION
  Report Type: 
  Country: None (occurrence: None)
  Receive Date: 20101109
  Receipt Date: 20101029
  Transmission Date: 20110411
  Serious: Yes (Other)
  Sender: FDA-Public Use
  Company Number: 2010022289

PATIENT
  Sex: Male
  Weight: 92 kg

DRUGS (8)
  1. VIVAGLOBIN [Suspect]
     Indication: IMMUNODEFICIENCY COMMON VARIABLE
     Dosage: SEE IMAGE; SUBCUTANEOUS
     Route: 058
     Dates: start: 20090301
  2. VIVAGLOBIN [Suspect]
     Indication: IMMUNODEFICIENCY COMMON VARIABLE
     Dosage: SEE IMAGE: SUBCUTANEOUS
     Route: 057
  3. VIVAGLOBIN [Suspect]
     Indication: IMMUNODEFICIENCY COMMON VARIABLE
     Dosage: SEE IMAGE: SUBCUTANEOUS
     Route: 058
  4. VIVAGLOBIN [Suspect]
     Indication: IMMUNODEFICIENCY COMMON VARIABLE
     Dosage: SEE IMAGE: SUBCUTANEOUS
     Route: 058
  5. VIVAGLOBIN [Suspect]
     Indication: IMMUNODEFICIENCY COMMON VARIABLE
     Dosage: SEE IMAGE: SUBCUTANEOUS
     Route: 058
  6. VIVAGLOBIN [Suspect]
     Indication: IMMUNODEFICIENCY COMMON VARIABLE
     Dosage: SEE IMAGE: SUBCUTANEOUS
     Route: 058
  7. VIVAGLOBIN [Suspect]
     Indication: IMMUNODEFICIENCY COMMON VARIABLE
     Dosage: SUBCUTANEOUS
     Route: 058
  8. MESALAMINE [Concomitant]

REACTIONS (7)
  - ANTI-HBS ANTIBODY POSITIVE [None]
  - APPENDICECTOMY [None]
  - ENTERITIS [None]
  - FALSE POSITIVE INVESTIGATION RESULT [None]
  - HEPATITIS B SURFACE ANTIGEN POSITIVE [None]
  - PERITONITIS [None]
  - TRANSMISSION OF AN INFECTIOUS AGENT VIA A MEDICINAL PRODUCT [None]
